FAERS Safety Report 21573608 (Version 8)
Quarter: 2025Q2

REPORT INFORMATION
  Report Type: Report from Study
  Country: US (occurrence: US)
  Receive Date: 20221109
  Receipt Date: 20250425
  Transmission Date: 20250716
  Serious: Yes (Hospitalization, Other)
  Sender: ABBVIE
  Company Number: US-ABBVIE-4192637

PATIENT
  Age: 59 Year
  Sex: Male

DRUGS (2)
  1. HUMIRA [Suspect]
     Active Substance: ADALIMUMAB
     Indication: Rheumatoid arthritis
     Route: 058
     Dates: start: 20210702, end: 202504
  2. HUMIRA [Suspect]
     Active Substance: ADALIMUMAB
     Route: 058

REACTIONS (15)
  - Loss of consciousness [Unknown]
  - Cerebrovascular accident [Not Recovered/Not Resolved]
  - Brain injury [Not Recovered/Not Resolved]
  - Wrong technique in product usage process [Unknown]
  - Poor peripheral circulation [Recovering/Resolving]
  - Cardiac disorder [Recovering/Resolving]
  - Unevaluable event [Unknown]
  - Arthropathy [Recovering/Resolving]
  - Pneumonectomy [Recovered/Resolved]
  - Foot amputation [Recovered/Resolved]
  - Wound [Recovered/Resolved]
  - Memory impairment [Not Recovered/Not Resolved]
  - Memory impairment [Not Recovered/Not Resolved]
  - Impaired healing [Not Recovered/Not Resolved]
  - Wound [Not Recovered/Not Resolved]

NARRATIVE: CASE EVENT DATE: 20240618
